FAERS Safety Report 7670255-9 (Version None)
Quarter: 2011Q3

REPORT INFORMATION
  Report Type: 
  Country: None (occurrence: None)
  Receive Date: 20110809
  Receipt Date: 20110802
  Transmission Date: 20111222
  Serious: Yes (Life-Threatening)
  Sender: FDA-Public Use
  Company Number: DE-AMGEN-DEUSP2011039833

PATIENT
  Age: 51 Year
  Sex: Female

DRUGS (1)
  1. ENBREL [Suspect]
     Indication: PSORIASIS
     Dosage: UNK
     Dates: start: 20100801, end: 20110401

REACTIONS (5)
  - STAPHYLOCOCCAL SEPSIS [None]
  - RENAL FAILURE [None]
  - ENTEROCOCCAL INFECTION [None]
  - SEPSIS [None]
  - ENDOCARDITIS [None]
